FAERS Safety Report 21033875 (Version 1)
Quarter: 2022Q2

REPORT INFORMATION
  Report Type: Spontaneous
  Country: US (occurrence: None)
  Receive Date: 20220630
  Receipt Date: 20220630
  Transmission Date: 20220721
  Serious: No
  Sender: FDA-Public Use
  Company Number: None

PATIENT
  Age: 88 Year
  Sex: Male

DRUGS (2)
  1. CLOBETASOL PROPIONATE OINT 0.05% [Suspect]
     Active Substance: CLOBETASOL PROPIONATE
     Indication: Psoriasis
     Dosage: FREQUENCY : TWICE A DAY; ?APPLY TO AFFECTED AREA(S) ON BACK TWICE DAILY AS?NEEDED?
     Route: 061
     Dates: start: 202112
  2. TALTZ [Suspect]
     Active Substance: IXEKIZUMAB
     Indication: Psoriasis
     Dosage: FREQUENCY : MONTHLY;?
     Route: 058
     Dates: start: 202112

REACTIONS (2)
  - Therapy interrupted [None]
  - Anaemia [None]
